FAERS Safety Report 8876535 (Version 2)
Quarter: 2014Q2

REPORT INFORMATION
  Report Type: Spontaneous
  Country: US (occurrence: US)
  Receive Date: 20121030
  Receipt Date: 20130810
  Transmission Date: 20141212
  Serious: Yes (Other)
  Sender: FDA-Public Use
  Company Number: US-BAXTER-2012BAX020622

PATIENT
  Sex: Female

DRUGS (1)
  1. SEVOFLURANE, USP [Suspect]
     Indication: KNEE ARTHROPLASTY
     Route: 055

REACTIONS (1)
  - Unwanted awareness during anaesthesia [Recovered/Resolved]
